FAERS Safety Report 10135731 (Version 1)
Quarter: 2014Q2

REPORT INFORMATION
  Report Type: Spontaneous
  Country: US (occurrence: US)
  Receive Date: 20140428
  Receipt Date: 20140428
  Transmission Date: 20141212
  Serious: Yes (Other)
  Sender: FDA-Public Use
  Company Number: US-RB-066522-14

PATIENT
  Age: 21 Year
  Sex: Female

DRUGS (2)
  1. BUPRENORPHINE/NALOXONE UNSPECIFIED [Suspect]
     Indication: DRUG DEPENDENCE
     Dosage: FURTHER DOSING DETAILS UNKNOWN
     Route: 060
     Dates: start: 2014
  2. HEROIN [Suspect]
     Indication: SUBSTANCE USE
     Dosage: TOOK 1 BAG, FURTHER DOSING DETAILS UNKNOWN
     Route: 065
     Dates: start: 20140417, end: 20140417

REACTIONS (5)
  - Substance abuse [Not Recovered/Not Resolved]
  - Wrong technique in drug usage process [Not Recovered/Not Resolved]
  - Maternal exposure during pregnancy [Not Recovered/Not Resolved]
  - Drug abuse [Recovered/Resolved]
  - Vaginal haemorrhage [Unknown]
